FAERS Safety Report 9863077 (Version 1)
Quarter: 2014Q1

REPORT INFORMATION
  Report Type: Report from Study
  Country: TW (occurrence: TW)
  Receive Date: 20140203
  Receipt Date: 20140203
  Transmission Date: 20141002
  Serious: No
  Sender: FDA-Public Use
  Company Number: PHHY2014TW012483

PATIENT
  Age: 84 Year
  Sex: Male

DRUGS (97)
  1. AMN107 [Suspect]
     Dosage: 800 MG, UNK
     Dates: start: 20111216, end: 20111225
  2. AMN107 [Suspect]
     Dosage: 200 MG, UNK
     Dates: start: 20120109, end: 20120126
  3. AMN107 [Suspect]
     Dosage: 400 MG, UNK
     Dates: start: 20120127, end: 20120711
  4. AMN107 [Suspect]
     Dosage: 600 MG, UNK
     Dates: start: 20120712, end: 20120905
  5. AMN107 [Suspect]
     Dosage: 800 MG, UNK
     Dates: start: 20120906
  6. KCL [Concomitant]
     Indication: METABOLIC ALKALOSIS
     Dates: start: 20111230, end: 20120103
  7. ACETAMINOPHEN [Concomitant]
     Indication: PYREXIA
     Dates: start: 20111126, end: 20111226
  8. ACETYLSALICYLIC ACID [Concomitant]
     Indication: THROMBOSIS PROPHYLAXIS
     Dates: start: 20111226, end: 20111226
  9. ACETYLSALICYLIC ACID [Concomitant]
     Dates: start: 20120419
  10. ALLOPURINOL [Concomitant]
     Indication: HYPERURICAEMIA
     Dates: start: 20120906
  11. AMLODIPINE [Concomitant]
     Indication: HYPERTENSION
     Dates: start: 20111228, end: 20111228
  12. AMOXICILLIN [Concomitant]
     Indication: PNEUMONIA
     Dates: start: 20111226, end: 20120102
  13. AMOXICILLIN + CLAVULANIC ACID [Concomitant]
     Indication: INFLUENZA
     Dates: start: 20130404, end: 20130407
  14. ASPIRIN [Concomitant]
     Indication: THROMBOSIS PROPHYLAXIS
     Dates: start: 20120108, end: 20120419
  15. ATORVASTATIN [Concomitant]
     Indication: HYPERCHOLESTEROLAEMIA
     Dates: start: 20121129
  16. BENZBROMARONE [Concomitant]
     Indication: HYPERURICAEMIA
     Dates: start: 20111226, end: 20111226
  17. BENZONATATE [Concomitant]
     Indication: COUGH
     Dates: start: 20130419, end: 20130502
  18. BROMHEXINE [Concomitant]
     Indication: PHARYNGITIS
     Dates: start: 20120622, end: 20120625
  19. BROMHEXINE [Concomitant]
     Indication: COUGH
     Dates: start: 20120712, end: 20120809
  20. BROMHEXINE [Concomitant]
     Dates: start: 20130419, end: 20130502
  21. BROMHEXINE [Concomitant]
     Indication: COUGH
     Dates: start: 20120316, end: 20120819
  22. BROWN MIXTURE                      /01682301/ [Concomitant]
     Indication: PHARYNGITIS
     Dates: start: 20120622, end: 20120625
  23. CTM//CHLORPHENAMINE MALEATE [Concomitant]
     Indication: URTICARIA
     Dates: start: 20120111, end: 20120126
  24. CTM//CHLORPHENAMINE MALEATE [Concomitant]
     Indication: RANULA
     Dates: start: 20120615, end: 20120629
  25. CTM//CHLORPHENAMINE MALEATE [Concomitant]
     Dates: start: 20120615, end: 20120706
  26. CTM//CHLORPHENAMINE MALEATE [Concomitant]
     Dates: start: 20120718, end: 20120721
  27. CTM//CHLORPHENAMINE MALEATE [Concomitant]
     Dates: start: 20121127, end: 20121225
  28. CEFTRIAXONE [Concomitant]
     Indication: PNEUMONIA
     Dates: start: 20111225, end: 20111226
  29. CEPHALEXIN [Concomitant]
     Indication: SKIN ULCER
     Dates: start: 20130806, end: 20130820
  30. CETRIZINE [Concomitant]
     Indication: URTICARIA
     Dates: start: 20120712, end: 20121101
  31. CETRIZINE [Concomitant]
     Dates: start: 20130918, end: 20131016
  32. CHLORHEXIDINE [Concomitant]
     Indication: DENTAL CARE
     Dates: start: 20120111, end: 20120117
  33. CHLORPHENIRAMIN [Concomitant]
     Indication: TRANSFUSION
     Dates: start: 20111226, end: 20111226
  34. CHLORPHENIRAMIN [Concomitant]
     Indication: URTICARIA
     Dates: start: 20111227, end: 20111227
  35. CHLORPHENIRAMIN [Concomitant]
     Indication: CATHETERISATION CARDIAC
     Dates: start: 20111228, end: 20111228
  36. CHLORPHENIRAMIN [Concomitant]
     Indication: RANULA
     Dates: start: 20120110, end: 20120110
  37. CHLORPHENIRAMIN [Concomitant]
     Dates: start: 20120203, end: 20120203
  38. CHLORPHENIRAMIN [Concomitant]
     Dates: start: 20120330, end: 20120330
  39. CHLORPHENIRAMIN [Concomitant]
     Dates: start: 20120518, end: 20120518
  40. CHLORPHENIRAMIN [Concomitant]
     Dates: start: 20130716, end: 20130716
  41. CHLORPHENIRAMIN [Concomitant]
     Dates: start: 20130718, end: 20130718
  42. CHLORPHENIRAMIN [Concomitant]
     Dates: start: 20131016, end: 20131016
  43. CLOBETASOL [Concomitant]
     Indication: ECZEMA
     Dates: start: 20120615, end: 20120629
  44. CLOBETASOL [Concomitant]
     Dates: start: 20120615, end: 20120706
  45. CLOBETASOL [Concomitant]
     Dates: start: 20121127, end: 20121225
  46. CLOPIDOGREL [Concomitant]
     Indication: MYOCARDIAL INFARCTION
     Dates: start: 20111226, end: 20111228
  47. CLOTRIMAZOLE [Concomitant]
     Indication: URTICARIA
     Dates: start: 20120111, end: 20120117
  48. DESLORATADINE [Concomitant]
     Indication: URTICARIA
     Dates: start: 20121101, end: 20130503
  49. DICLOFENAC POTASSIUM [Concomitant]
     Indication: PHARYNGITIS
     Dates: start: 20120622, end: 20120625
  50. DIFLUCORTOLONE [Concomitant]
     Indication: ECZEMA
     Dates: start: 20120615
  51. DOXAZOSIN [Concomitant]
     Indication: HYPERTENSION
     Dates: start: 20120419
  52. RENITEC                                 /NET/ [Concomitant]
     Indication: HYPERTENSION
     Dates: start: 20111226
  53. FEXOFENADINE [Concomitant]
     Indication: URTICARIA
     Dates: start: 20120420, end: 20120713
  54. FEXOFENADINE [Concomitant]
     Dates: start: 20130820, end: 20130917
  55. FUROSEMIDE [Concomitant]
     Indication: PLEURAL EFFUSION
     Dates: start: 20111225
  56. FUSIDIC ACID [Concomitant]
     Indication: SKIN ULCER
     Dates: start: 20130806, end: 20130820
  57. HYDROCORTISONE [Concomitant]
     Indication: TRANSFUSION
     Dates: start: 20111227, end: 20111227
  58. HYDROCORTISONE [Concomitant]
     Indication: WHEEZING
     Dates: start: 20111230, end: 20111230
  59. HYDROCORTISONE [Concomitant]
     Indication: RANULA
     Dates: start: 20120203, end: 20120203
  60. HYDROCORTISONE [Concomitant]
     Dates: start: 20120330, end: 20120330
  61. HYDROCORTISONE [Concomitant]
     Dates: start: 20120518, end: 20120518
  62. HYDROCORTISONE [Concomitant]
     Dates: start: 20130718, end: 20130718
  63. HYDROCORTISONE [Concomitant]
     Dates: start: 20131016, end: 20131016
  64. ISOSORBIDE DINITRATE [Concomitant]
     Indication: MYOCARDIAL INFARCTION
     Dates: start: 20111225, end: 20120419
  65. LEVOCETIRIZINE [Concomitant]
     Indication: RANULA
     Dates: start: 20130718, end: 20130721
  66. LORAZEPAM [Concomitant]
     Indication: INSOMNIA
     Dates: start: 20120104, end: 20120105
  67. LORAZEPAM [Concomitant]
     Dates: start: 20120111, end: 20120117
  68. MAGNESIUM OXIDE [Concomitant]
     Indication: CONSTIPATION
     Dates: start: 20111229, end: 20111231
  69. MAGNESIUM OXIDE [Concomitant]
     Dates: start: 20130121, end: 20130218
  70. MEDICON A [Concomitant]
     Indication: INFLUENZA
     Dates: start: 20130408, end: 20130415
  71. METOCLOPRAMIDE [Concomitant]
     Indication: CONSTIPATION
     Dates: start: 20120108, end: 20120128
  72. METOLAZONE [Concomitant]
     Indication: PLEURAL EFFUSION
     Dates: start: 20111226, end: 20111226
  73. MIDAZOLAM [Concomitant]
     Indication: ENDOTRACHEAL INTUBATION
     Dates: start: 20111226, end: 20111226
  74. MIDAZOLAM [Concomitant]
     Indication: SEDATION
     Dates: start: 20111227, end: 20111228
  75. MORPHINE [Concomitant]
     Indication: PLEURAL EFFUSION
     Dates: start: 20111226, end: 20111226
  76. MOSAPRIDE [Concomitant]
     Indication: CONSTIPATION
     Dates: start: 20130121, end: 20130218
  77. NIFLEC [Concomitant]
     Indication: PREMEDICATION
     Dates: start: 20121220, end: 20121220
  78. NIFLEC [Concomitant]
     Indication: COLONOSCOPY
  79. OSELTAMIVIR [Concomitant]
     Indication: INFLUENZA
     Dates: start: 20130404, end: 20130409
  80. POTASSIUM CITRATE [Concomitant]
     Indication: METABOLIC ACIDOSIS
     Dates: start: 20111230, end: 20111230
  81. POTASSIUM CHLORIDE [Concomitant]
     Indication: HYPOKALAEMIA
     Dates: start: 20111230, end: 20111230
  82. PREDNISOLONE [Concomitant]
     Indication: RANULA
     Dates: start: 20130718, end: 20130721
  83. RHIN [Concomitant]
     Indication: INFLUENZA
     Dates: start: 20130404, end: 20130415
  84. SENNOSIDE [Concomitant]
     Indication: CONSTIPATION
     Dates: start: 20130503, end: 20130520
  85. SENOKOT                            /00936101/ [Concomitant]
     Indication: CONSTIPATION
     Dates: start: 20111223, end: 20111230
  86. SENOKOT                            /00936101/ [Concomitant]
     Dates: start: 20111229, end: 20111231
  87. SENOKOT                            /00936101/ [Concomitant]
     Dates: start: 20120111, end: 20120128
  88. SENOKOT                            /00936101/ [Concomitant]
     Dates: start: 20120906, end: 20121004
  89. SENOKOT                            /00936101/ [Concomitant]
     Dates: start: 20121214, end: 20130208
  90. SODIUM PHOSPHATE [Concomitant]
     Indication: CONSTIPATION
     Dates: start: 20120109, end: 20120109
  91. SPIRONOLACTONE [Concomitant]
     Indication: PLEURAL EFFUSION
     Dates: start: 20111231, end: 20120101
  92. TAMSULOSIN [Concomitant]
     Indication: BENIGN PROSTATIC HYPERPLASIA
     Dates: start: 20121130, end: 20130503
  93. TAMSULOSIN HYDROCHLORIDE [Concomitant]
     Indication: BENIGN PROSTATIC HYPERPLASIA
     Dates: start: 20120118, end: 20120419
  94. TRIAMCINOLONE [Concomitant]
     Indication: RANULA
     Dates: start: 20130716, end: 20130729
  95. IPRATROPIUM BROMIDE AND SALBUTAMOL SULFATE [Concomitant]
     Indication: WHEEZING
     Dates: start: 20111226, end: 20111226
  96. UREA [Concomitant]
     Indication: ECZEMA
     Dates: start: 20120615, end: 20120629
  97. UREA [Concomitant]
     Dates: start: 20120615, end: 20120706

REACTIONS (1)
  - Skin ulcer [Unknown]
